FAERS Safety Report 9338269 (Version 1)
Quarter: 2013Q2

REPORT INFORMATION
  Report Type: Spontaneous
  Country: US (occurrence: US)
  Receive Date: 20130610
  Receipt Date: 20130610
  Transmission Date: 20140414
  Serious: No
  Sender: FDA-Public Use
  Company Number: US-009507513-1306USA002442

PATIENT
  Age: 65 Year
  Sex: Female

DRUGS (5)
  1. SAPHRIS [Suspect]
     Indication: MAJOR DEPRESSION
     Dosage: UNK
     Route: 060
     Dates: start: 201303, end: 201303
  2. GEODON [Concomitant]
  3. AMBIEN [Concomitant]
  4. CYMBALTA [Concomitant]
  5. GABAPENTIN [Concomitant]

REACTIONS (1)
  - Akathisia [Recovered/Resolved]
